FAERS Safety Report 5142125-1 (Version None)
Quarter: 2006Q4

REPORT INFORMATION
  Report Type: 
  Country: None (occurrence: None)
  Receive Date: 20061102
  Receipt Date: 20050902
  Transmission Date: 20070319
  Serious: Yes (Hospitalization, Disabling)
  Sender: FDA-Public Use
  Company Number: JP-ELI_LILLY_AND_COMPANY-JP_050907547

PATIENT
  Age: 74 Year
  Sex: Female
  Weight: 35 kg

DRUGS (8)
  1. RALOXIFENE HCL [Suspect]
     Indication: OSTEOPOROSIS POSTMENOPAUSAL
     Dosage: 60 MG, DAILY (1/D)
     Route: 048
     Dates: start: 20050323, end: 20050509
  2. PREDONINE [Concomitant]
     Indication: RHEUMATOID ARTHRITIS
     Dosage: 5 MG, DAILY (1/D)
     Route: 048
  3. ONON [Concomitant]
     Indication: ASTHMA
     Dosage: 450 MG, DAILY (1/D)
     Route: 048
     Dates: start: 20050322, end: 20050509
  4. ACINON [Concomitant]
     Indication: PROPHYLAXIS
     Dosage: 300 MG, DAILY (1/D)
     Route: 048
     Dates: start: 20050322, end: 20050509
  5. MAGNESIUM OXIDE [Concomitant]
     Indication: CONSTIPATION
     Dosage: 1.5 MG, DAILY (1/D)
     Route: 048
     Dates: start: 20050322, end: 20050509
  6. DIOVAN [Concomitant]
     Indication: HYPERTENSION
     Dosage: 80 MG, DAILY (1/D)
     Route: 048
     Dates: start: 20050322, end: 20050509
  7. NORVASK [Concomitant]
     Indication: HYPERTENSION
     Dosage: 5 MG, DAILY (1/D)
     Route: 048
     Dates: end: 20050509
  8. THEO-DUR [Concomitant]
     Indication: ASTHMA
     Dosage: 100 MG, DAILY (1/D)
     Route: 048
     Dates: end: 20050509

REACTIONS (4)
  - CEREBRAL INFARCTION [None]
  - DIABETES MELLITUS [None]
  - PNEUMONIA STAPHYLOCOCCAL [None]
  - THROMBOTIC STROKE [None]
